FAERS Safety Report 4342921-4 (Version None)
Quarter: 2004Q1

REPORT INFORMATION
  Report Type: 
  Country: None (occurrence: None)
  Receive Date: 20040325
  Receipt Date: 20040218
  Transmission Date: 20041129
  Serious: No
  Sender: FDA-Public Use
  Company Number: USA030741603

PATIENT
  Age: 80 Year
  Sex: Female
  Weight: 52 kg

DRUGS (2)
  1. FORTEO [Suspect]
     Indication: OSTEOPOROSIS
     Dosage: 20 UG/DAY
     Dates: start: 20030201
  2. OXYCONTIN [Concomitant]

REACTIONS (3)
  - ALOPECIA [None]
  - INJECTION SITE HAEMORRHAGE [None]
  - ONYCHORRHEXIS [None]
